FAERS Safety Report 15297750 (Version 1)
Quarter: 2018Q3

REPORT INFORMATION
  Report Type: Spontaneous
  Country: JP (occurrence: JP)
  Receive Date: 20180820
  Receipt Date: 20180820
  Transmission Date: 20181010
  Serious: Yes (Other)
  Sender: FDA-Public Use
  Company Number: JP-PFIZER INC-2018329682

PATIENT

DRUGS (1)
  1. SALAZOPYRIN 500MG [Suspect]
     Active Substance: SULFASALAZINE
     Dosage: UNK
     Route: 048

REACTIONS (1)
  - Plasma cell myeloma [Unknown]
